FAERS Safety Report 12502420 (Version 1)
Quarter: 2016Q2

REPORT INFORMATION
  Report Type: Spontaneous
  Country: US (occurrence: US)
  Receive Date: 20160627
  Receipt Date: 20160627
  Transmission Date: 20160815
  Serious: Yes (Hospitalization)
  Sender: FDA-Public Use
  Company Number: US-009507513-1606USA009285

PATIENT
  Age: 64 Year
  Sex: Female

DRUGS (16)
  1. ONDANSETRON HYDROCHLORIDE. [Concomitant]
     Active Substance: ONDANSETRON HYDROCHLORIDE
     Dosage: 4 MG, PRN
  2. MEVACOR [Suspect]
     Active Substance: LOVASTATIN
     Indication: BLOOD CHOLESTEROL ABNORMAL
     Dosage: 20 MG, TWO TIMES DAILY
     Route: 048
  3. CARBAMAZEPINE. [Suspect]
     Active Substance: CARBAMAZEPINE
     Indication: SEIZURE
     Dosage: 200 MG, UNK
  4. FEROCON [Suspect]
     Active Substance: FERROUS FUMARATE\FOLIC ACID\VITAMIN B COMPLEX
     Indication: IRON DEFICIENCY ANAEMIA
     Dosage: 0.5 MG, ONCE A DAY
  5. METFORMIN [Concomitant]
     Active Substance: METFORMIN HYDROCHLORIDE
     Dosage: UNK
  6. ZANAFLEX [Concomitant]
     Active Substance: TIZANIDINE HYDROCHLORIDE
     Dosage: 2 MG, BEDTIME
  7. LIOTHYRONINE SODIUM. [Suspect]
     Active Substance: LIOTHYRONINE SODIUM
     Indication: THYROID DISORDER
     Dosage: 5 MICROGRAM, 2 X DAY
  8. XELJANZ [Suspect]
     Active Substance: TOFACITINIB CITRATE
     Indication: ARTHRITIS
     Dosage: 20 MG, ONCE A DAY
     Dates: end: 20160610
  9. ALPRAZOLAM. [Suspect]
     Active Substance: ALPRAZOLAM
     Indication: SLEEP DISORDER
     Dosage: 2 MG, ONCE DAILY
  10. HYDROCODONE [Suspect]
     Active Substance: HYDROCODONE
     Indication: PAIN
     Dosage: 325 (UNITS NOT PROVIDED), 3 X DAY
  11. MECLIZINE [Suspect]
     Active Substance: MECLIZINE HYDROCHLORIDE
     Indication: DIZZINESS
     Dosage: 25 MG, UNK
  12. NASONEX [Concomitant]
     Active Substance: MOMETASONE FUROATE
     Dosage: 50 MCG, ONCE DAILY
     Dates: start: 20150527
  13. NEXIUM [Concomitant]
     Active Substance: ESOMEPRAZOLE MAGNESIUM
     Dosage: 40 MG, ONCE DAILY
  14. HYDROXYCHLOROQUINE SULFATE. [Concomitant]
     Active Substance: HYDROXYCHLOROQUINE SULFATE
     Dosage: 200 MG, 2 X DAILY
  15. GABAPENTIN. [Suspect]
     Active Substance: GABAPENTIN
     Dosage: 800 MG, UNK
  16. METAXALONE. [Suspect]
     Active Substance: METAXALONE
     Dosage: 2 TABLETS, 3 X DAY

REACTIONS (3)
  - Constipation [Recovered/Resolved]
  - Adverse event [Recovered/Resolved]
  - Diarrhoea [Recovered/Resolved]

NARRATIVE: CASE EVENT DATE: 20160610
